FAERS Safety Report 22148802 (Version 1)
Quarter: 2023Q1

REPORT INFORMATION
  Report Type: Spontaneous
  Country: US (occurrence: US)
  Receive Date: 20230328
  Receipt Date: 20230328
  Transmission Date: 20230417
  Serious: No
  Sender: FDA-Public Use
  Company Number: US-CTI BIOPHARMA-2023US03363

PATIENT

DRUGS (7)
  1. VONJO [Suspect]
     Active Substance: PACRITINIB
     Indication: Myelofibrosis
     Dosage: 200 MG, BID
     Route: 048
     Dates: start: 202211
  2. ATORVASTATIN [Concomitant]
     Active Substance: ATORVASTATIN
     Dosage: UNK
  3. MINERALS\VITAMINS [Concomitant]
     Active Substance: MINERALS\VITAMINS
  4. FOLIC ACID [Concomitant]
     Active Substance: FOLIC ACID
  5. HYDROXYUREA [Concomitant]
     Active Substance: HYDROXYUREA
  6. JAKAFI [Concomitant]
     Active Substance: RUXOLITINIB
  7. METOPROLOL [Concomitant]
     Active Substance: METOPROLOL

REACTIONS (2)
  - Hepatomegaly [Unknown]
  - Vomiting [Unknown]
